FAERS Safety Report 5715685-7 (Version None)
Quarter: 2008Q2

REPORT INFORMATION
  Report Type: 
  Country: None (occurrence: None)
  Receive Date: 20080424
  Receipt Date: 20080415
  Transmission Date: 20081010
  Serious: Yes (Death)
  Sender: FDA-Public Use
  Company Number: FR-WYE-H03665708

PATIENT
  Sex: Female

DRUGS (13)
  1. PANTOPRAZOLE SODIUM [Suspect]
     Route: 048
     Dates: start: 20071108, end: 20071111
  2. TERCIAN [Suspect]
     Indication: MENTAL DISORDER
     Dosage: 50 MG EVERY 1 TOT
     Route: 030
     Dates: start: 20071112, end: 20071112
  3. GALANTAMINE HYDROBROMIDE [Suspect]
     Indication: AMNESIA
     Route: 048
     Dates: end: 20071111
  4. ATHYMIL [Suspect]
     Indication: DEPRESSION
     Route: 048
     Dates: end: 20071111
  5. OXYNORM [Suspect]
     Indication: PAIN
     Route: 048
     Dates: start: 20071110, end: 20071111
  6. ATACAND [Suspect]
     Indication: ESSENTIAL HYPERTENSION
     Route: 048
     Dates: end: 20071111
  7. ATENOLOL [Suspect]
     Route: 048
     Dates: end: 20071111
  8. PRAXILENE [Suspect]
     Indication: MENTAL DISORDER
     Route: 048
     Dates: end: 20071111
  9. PREVISCAN [Suspect]
     Indication: ATRIAL FIBRILLATION
     Route: 048
     Dates: end: 20071111
  10. PREVISCAN [Suspect]
     Indication: ATRIAL FLUTTER
  11. FORLAX [Suspect]
     Indication: CONSTIPATION
     Route: 048
     Dates: start: 20071110, end: 20071111
  12. MEPRONIZINE [Suspect]
     Indication: INSOMNIA
     Route: 048
  13. OXYCONTIN [Suspect]
     Indication: PAIN
     Route: 048
     Dates: start: 20071110, end: 20071111

REACTIONS (5)
  - CYANOSIS [None]
  - DYSPNOEA [None]
  - EYE ROLLING [None]
  - LOSS OF CONSCIOUSNESS [None]
  - URINARY INCONTINENCE [None]
